FAERS Safety Report 9231961 (Version 2)
Quarter: 2013Q3

REPORT INFORMATION
  Report Type: Report from Study
  Country: NL (occurrence: NL)
  Receive Date: 20130415
  Receipt Date: 20130814
  Transmission Date: 20140515
  Serious: Yes (Hospitalization, Other)
  Sender: FDA-Public Use
  Company Number: NL-ELI_LILLY_AND_COMPANY-NL201304001777

PATIENT
  Age: 76 Year
  Sex: Female

DRUGS (4)
  1. TERIPARATIDE [Suspect]
     Indication: OSTEOPOROSIS
     Dosage: 20 UG, QD
     Route: 058
     Dates: start: 20130318
  2. PREDNISOLON [Concomitant]
  3. COLECALCIFEROL [Concomitant]
     Dosage: UNK
  4. OMEPRAZOL [Concomitant]
     Dosage: UNK

REACTIONS (1)
  - Cerebral haemorrhage [Unknown]
